FAERS Safety Report 25083596 (Version 1)
Quarter: 2025Q1

REPORT INFORMATION
  Report Type: Spontaneous
  Country: GB (occurrence: GB)
  Receive Date: 20250317
  Receipt Date: 20250317
  Transmission Date: 20250409
  Serious: Yes (Hospitalization, Other)
  Sender: MYLAN
  Company Number: None

PATIENT
  Age: 91 Year
  Sex: Female

DRUGS (14)
  1. AMLODIPINE [Suspect]
     Active Substance: AMLODIPINE BESYLATE
     Indication: Product used for unknown indication
     Dosage: 5 MILLIGRAM, QD
  2. ATORVASTATIN [Concomitant]
     Active Substance: ATORVASTATIN
  3. APIXABAN [Concomitant]
     Active Substance: APIXABAN
     Dosage: 1 DOSAGE FORM, BID (2.5 MG 1 TABLET TWICE A DAY)
  4. DENOSUMAB [Concomitant]
     Active Substance: DENOSUMAB
  5. Hylo [Concomitant]
     Dosage: UNK, PM (HYLO NIGHT EYE OINTMENT PRESERVATIVE FREE - APPLY ON)
  6. HYALURONATE SODIUM\TREHALOSE [Concomitant]
     Active Substance: HYALURONATE SODIUM\TREHALOSE
     Dosage: UNK, QD (THEALOZ DUO EYE DROPS PRESERVATIVE FREE - 2-4 TIMES OD)
  7. CARBOXYMETHYLCELLULOSE [Concomitant]
     Active Substance: CARBOXYMETHYLCELLULOSE
  8. CITALOPRAM [Concomitant]
     Active Substance: CITALOPRAM
     Dosage: 20 MILLIGRAM, QD (20MG TABLETS 1O)
  9. CITALOPRAM [Concomitant]
     Active Substance: CITALOPRAM
     Dosage: 10 MILLIGRAM, QD (10MG 1OD)
  10. PROLIA [Concomitant]
     Active Substance: DENOSUMAB
  11. CALCIUM CARBONATE\CHOLECALCIFEROL [Concomitant]
     Active Substance: CALCIUM CARBONATE\CHOLECALCIFEROL
  12. REFRESH CELLUVISC [Concomitant]
     Active Substance: CARBOXYMETHYLCELLULOSE SODIUM
  13. CALCIUM CARBONATE\CHOLECALCIFEROL [Concomitant]
     Active Substance: CALCIUM CARBONATE\CHOLECALCIFEROL
     Dosage: 1 DOSAGE FORM, QD (CHEWABLE TABLETS TUTTI FRUTTI - 1OD)
  14. Xailin [Concomitant]
     Dosage: UNK, PM (XAILIN NIGHT EYE OINTMENT PRESERVATIVE FREE - APPLY ON)

REACTIONS (1)
  - Subdural haematoma [Unknown]
